FAERS Safety Report 18046052 (Version 2)
Quarter: 2020Q4

REPORT INFORMATION
  Report Type: Spontaneous
  Country: US (occurrence: US)
  Receive Date: 20200720
  Receipt Date: 20201028
  Transmission Date: 20210113
  Serious: No
  Sender: FDA-Public Use
  Company Number: US-JNJFOC-20200712434

PATIENT
  Age: 43 Year
  Sex: Female
  Weight: 118.04 kg

DRUGS (4)
  1. INVEGA SUSTENNA [Suspect]
     Active Substance: PALIPERIDONE PALMITATE
  2. INVEGA SUSTENNA [Suspect]
     Active Substance: PALIPERIDONE PALMITATE
     Indication: ABNORMAL BEHAVIOUR
     Route: 030
     Dates: start: 202002
  3. INVEGA SUSTENNA [Suspect]
     Active Substance: PALIPERIDONE PALMITATE
  4. FLAGYL [Suspect]
     Active Substance: METRONIDAZOLE\METRONIDAZOLE HYDROCHLORIDE
     Indication: VAGINAL DISORDER
     Route: 065
     Dates: start: 2020

REACTIONS (17)
  - Breast pain [Unknown]
  - Product use in unapproved indication [Unknown]
  - Off label use [Unknown]
  - Muscle spasms [Unknown]
  - Hot flush [Unknown]
  - Muscle disorder [Unknown]
  - Feeling abnormal [Unknown]
  - Galactorrhoea [Unknown]
  - Blood prolactin increased [Not Recovered/Not Resolved]
  - Incontinence [Unknown]
  - Hypoaesthesia [Unknown]
  - Uterine leiomyoma [Unknown]
  - Heart rate increased [Unknown]
  - Gastric dilatation [Unknown]
  - Bruxism [Unknown]
  - Polymenorrhoea [Unknown]
  - Muscle twitching [Unknown]

NARRATIVE: CASE EVENT DATE: 2020
